FAERS Safety Report 9495263 (Version 8)
Quarter: 2013Q4

REPORT INFORMATION
  Report Type: Report from Study
  Country: CN (occurrence: CN)
  Receive Date: 20130903
  Receipt Date: 20131112
  Transmission Date: 20140711
  Serious: Yes (Hospitalization)
  Sender: FDA-Public Use
  Company Number: CN-GLAXOSMITHKLINE-B0891276B

PATIENT
  Age: 43 Year
  Sex: 0
  Weight: 69.2 kg

DRUGS (15)
  1. BELIMUMAB [Suspect]
     Indication: SYSTEMIC LUPUS ERYTHEMATOSUS
     Route: 042
     Dates: start: 20130309
  2. ACYCLOVIR [Concomitant]
     Indication: HERPES ZOSTER
     Dosage: .5G PER DAY
     Route: 042
     Dates: start: 20130718, end: 20130722
  3. VITAMIN B [Concomitant]
     Indication: HERPES ZOSTER
     Dosage: 10MG THREE TIMES PER DAY
     Route: 048
     Dates: start: 20130718, end: 20130730
  4. VITAMIN B12 [Concomitant]
     Indication: HERPES ZOSTER
     Dosage: .5MG THREE TIMES PER DAY
     Route: 048
     Dates: start: 20130718, end: 20130730
  5. PREDNISON [Concomitant]
     Indication: SYSTEMIC LUPUS ERYTHEMATOSUS
     Route: 048
     Dates: start: 20130718
  6. HYDROXYCHLOROQUINE [Concomitant]
     Indication: SYSTEMIC LUPUS ERYTHEMATOSUS
     Dosage: .2G PER DAY
     Route: 048
     Dates: start: 20130313
  7. FUROSEMIDE [Concomitant]
     Indication: LUPUS NEPHRITIS
     Dosage: 20MG THREE TIMES PER DAY
     Route: 048
     Dates: start: 20130313, end: 20130826
  8. CLONIDINE [Concomitant]
     Indication: RENAL HYPERTENSION
     Dosage: 75UG THREE TIMES PER DAY
     Dates: start: 20130302, end: 20130826
  9. BENAZEPRIL HYDROCHLORIDE [Concomitant]
     Indication: LUPUS NEPHRITIS
     Dosage: 10MG PER DAY
     Route: 048
     Dates: start: 20130302
  10. AMLODIPINE BESYLATE [Concomitant]
     Indication: RENAL HYPERTENSION
     Dosage: 5MG PER DAY
     Route: 048
     Dates: start: 20130313
  11. ASPIRIN [Concomitant]
     Indication: SYSTEMIC LUPUS ERYTHEMATOSUS
     Dosage: .1G PER DAY
     Route: 048
     Dates: start: 20130313
  12. SIMVASTATIN [Concomitant]
     Indication: HYPERLIPIDAEMIA
     Dosage: 20MG PER DAY
     Route: 048
     Dates: start: 20130313, end: 20130826
  13. CALCIUM CARBONATE [Concomitant]
  14. OMEPRAZOLE [Concomitant]
     Indication: PROPHYLAXIS
     Dosage: 20MG PER DAY
     Route: 048
     Dates: start: 20130917, end: 20130927
  15. PREDNISON [Concomitant]
     Indication: SYSTEMIC LUPUS ERYTHEMATOSUS
     Route: 048
     Dates: start: 20130917

REACTIONS (1)
  - Tuberculous pleurisy [Recovering/Resolving]
